FAERS Safety Report 6928962-9 (Version None)
Quarter: 2010Q3

REPORT INFORMATION
  Report Type: 
  Country: None (occurrence: None)
  Receive Date: 20100817
  Receipt Date: 20100805
  Transmission Date: 20110219
  Serious: Yes (Other)
  Sender: FDA-Public Use
  Company Number: US-PFIZER INC-2010098998

PATIENT
  Sex: Male
  Weight: 79 kg

DRUGS (4)
  1. CHANTIX [Suspect]
     Indication: SMOKING CESSATION THERAPY
     Dosage: 0.5 MG, 1X/DAY
     Route: 048
     Dates: start: 20100701, end: 20100101
  2. CHANTIX [Suspect]
     Dosage: 1 MG, 2X/DAY
     Route: 048
     Dates: start: 20100701
  3. SEROQUEL [Concomitant]
     Indication: ANXIETY
     Dosage: 400 MG, 1X/DAY
     Route: 048
  4. METHADONE [Concomitant]
     Indication: BACK PAIN
     Dosage: 110 MG, 1X/DAY

REACTIONS (1)
  - HYPERTENSION [None]
